FAERS Safety Report 11433545 (Version 1)
Quarter: 2015Q3

REPORT INFORMATION
  Report Type: Spontaneous
  Country: US (occurrence: US)
  Receive Date: 20150831
  Receipt Date: 20150831
  Transmission Date: 20151125
  Serious: No
  Sender: FDA-Public Use
  Company Number: US-ASTRAZENECA-2015SE80902

PATIENT
  Sex: Female

DRUGS (4)
  1. SEROQUEL [Suspect]
     Active Substance: QUETIAPINE FUMARATE
     Route: 048
  2. LITHIUM. [Concomitant]
     Active Substance: LITHIUM
  3. PREVACID [Concomitant]
     Active Substance: LANSOPRAZOLE
  4. ANTI-NAUSEA [Concomitant]
     Active Substance: UNSPECIFIED INGREDIENT

REACTIONS (7)
  - Vomiting [Unknown]
  - Emotional disorder [Unknown]
  - Nausea [Unknown]
  - Tremor [Unknown]
  - Blood cholesterol abnormal [Unknown]
  - Weight increased [Unknown]
  - Blood triglycerides abnormal [Unknown]
